FAERS Safety Report 9805522 (Version 1)
Quarter: 2014Q1

REPORT INFORMATION
  Report Type: Spontaneous
  Country: US (occurrence: None)
  Receive Date: 20140108
  Receipt Date: 20140108
  Transmission Date: 20141002
  Serious: Yes (Hospitalization)
  Sender: FDA-Public Use
  Company Number: None

PATIENT
  Age: 65 Year
  Sex: Female
  Weight: 131.09 kg

DRUGS (1)
  1. SYNVISC-ONE [Suspect]
     Indication: OSTEOARTHRITIS
     Dates: start: 20130708

REACTIONS (2)
  - Drug hypersensitivity [None]
  - Chronic obstructive pulmonary disease [None]
